FAERS Safety Report 19443182 (Version 1)
Quarter: 2021Q2

REPORT INFORMATION
  Report Type: Spontaneous
  Country: FR (occurrence: FR)
  Receive Date: 20210621
  Receipt Date: 20210621
  Transmission Date: 20210717
  Serious: Yes (Hospitalization, Other)
  Sender: FDA-Public Use
  Company Number: FR-PFIZER INC-2021660909

PATIENT
  Age: 55 Year
  Sex: Male
  Weight: 93 kg

DRUGS (9)
  1. EPCORITAMAB. [Suspect]
     Active Substance: EPCORITAMAB
     Indication: DIFFUSE LARGE B-CELL LYMPHOMA
     Dosage: 48 MG, WEEKLY (FULL DOSE, REGIMEN?03)
     Route: 058
     Dates: start: 20210510
  2. OXALIPLATIN. [Suspect]
     Active Substance: OXALIPLATIN
     Indication: DIFFUSE LARGE B-CELL LYMPHOMA
     Dosage: 100 MG/M2 , 1Q2W, REGIMEN?01
     Route: 042
     Dates: start: 20210426
  3. POLARAMINE [Concomitant]
     Active Substance: DEXCHLORPHENIRAMINE MALEATE
     Dosage: UNK
     Dates: start: 20210510, end: 20210510
  4. BACTRIM [Concomitant]
     Active Substance: SULFAMETHOXAZOLE\TRIMETHOPRIM
     Dosage: UNK
     Dates: start: 2019, end: 20210420
  5. GEMCITABINE HYDROCHLORIDE. [Suspect]
     Active Substance: GEMCITABINE HYDROCHLORIDE
     Indication: DIFFUSE LARGE B-CELL LYMPHOMA
     Dosage: 1000 MG/M2 (1Q2W, REGIMEN?01)
     Route: 042
     Dates: start: 20210426
  6. EPCORITAMAB. [Suspect]
     Active Substance: EPCORITAMAB
     Indication: DIFFUSE LARGE B-CELL LYMPHOMA
     Dosage: 0.16 MG, SINGLE DOSE, REGIMEN?01
     Route: 058
     Dates: start: 20210426, end: 20210426
  7. METHYLPREDNISOLONE. [Concomitant]
     Active Substance: METHYLPREDNISOLONE
     Dosage: UNK
     Dates: start: 20210510, end: 20210510
  8. EPCORITAMAB. [Suspect]
     Active Substance: EPCORITAMAB
     Indication: DIFFUSE LARGE B-CELL LYMPHOMA
     Dosage: 0.8 MG SINGLE DOSE, REGIMEN?02
     Route: 058
     Dates: start: 20210503, end: 20210503
  9. DOLIPRANE [Concomitant]
     Active Substance: ACETAMINOPHEN
     Dosage: UNK
     Dates: start: 20210510, end: 20210510

REACTIONS (3)
  - Sepsis [Not Recovered/Not Resolved]
  - Off label use [Unknown]
  - Cytokine release syndrome [Not Recovered/Not Resolved]

NARRATIVE: CASE EVENT DATE: 20210511
